FAERS Safety Report 9339632 (Version 2)
Quarter: 2013Q2

REPORT INFORMATION
  Report Type: Spontaneous
  Country: US (occurrence: US)
  Receive Date: 20130610
  Receipt Date: 20130621
  Transmission Date: 20140414
  Serious: Yes (Hospitalization)
  Sender: FDA-Public Use
  Company Number: US-BIOGENIDEC-2013BI051049

PATIENT
  Age: 44 Year
  Sex: Female

DRUGS (1)
  1. TYSABRI [Suspect]
     Indication: MULTIPLE SCLEROSIS
     Route: 042
     Dates: start: 20130222

REACTIONS (6)
  - Malaise [Unknown]
  - Vertigo [Recovered/Resolved]
  - Middle ear effusion [Recovered/Resolved]
  - Ear injury [Recovered/Resolved]
  - Anxiety [Recovered/Resolved]
  - Feeling abnormal [Not Recovered/Not Resolved]
